FAERS Safety Report 8157296-2 (Version None)
Quarter: 2012Q1

REPORT INFORMATION
  Report Type: 
  Country: None (occurrence: None)
  Receive Date: 20120222
  Receipt Date: 20120210
  Transmission Date: 20120608
  Serious: Yes (Hospitalization, Other)
  Sender: FDA-Public Use
  Company Number: US-ROCHE-1041596

PATIENT
  Sex: Male
  Weight: 56.4 kg

DRUGS (1)
  1. XELODA [Suspect]
     Indication: COLORECTAL CANCER METASTATIC
     Route: 048
     Dates: start: 20111128, end: 20120105

REACTIONS (2)
  - WEIGHT DECREASED [None]
  - RADIATION SKIN INJURY [None]
